FAERS Safety Report 14879548 (Version 3)
Quarter: 2018Q2

REPORT INFORMATION
  Report Type: Report from Study
  Country: US (occurrence: US)
  Receive Date: 20180511
  Receipt Date: 20180627
  Transmission Date: 20180711
  Serious: Yes (Hospitalization)
  Sender: FDA-Public Use
  Company Number: US-AMGEN-USASL2018062320

PATIENT
  Age: 82 Year
  Sex: Male

DRUGS (2)
  1. REPATHA [Suspect]
     Active Substance: EVOLOCUMAB
     Indication: BLOOD CHOLESTEROL INCREASED
     Dosage: 140 MG, Q2WK
     Route: 065
     Dates: end: 2018
  2. REPATHA [Suspect]
     Active Substance: EVOLOCUMAB
     Indication: HYPERCHOLESTEROLAEMIA

REACTIONS (6)
  - Dyspnoea [Recovering/Resolving]
  - Pain in extremity [Not Recovered/Not Resolved]
  - Influenza [Recovering/Resolving]
  - Pleural effusion [Unknown]
  - Depressed mood [Unknown]
  - Mobility decreased [Recovering/Resolving]

NARRATIVE: CASE EVENT DATE: 201804
